FAERS Safety Report 6143115-2 (Version None)
Quarter: 2009Q2

REPORT INFORMATION
  Report Type: 
  Country: None (occurrence: None)
  Receive Date: 20090403
  Receipt Date: 20090327
  Transmission Date: 20091009
  Serious: Yes (Hospitalization)
  Sender: FDA-Public Use
  Company Number: FR-JNJFOC-20090306740

PATIENT
  Sex: Male

DRUGS (8)
  1. HALDOL [Suspect]
     Indication: DRUG USE FOR UNKNOWN INDICATION
     Route: 048
  2. AVLOCARDYL [Interacting]
     Indication: DRUG USE FOR UNKNOWN INDICATION
     Route: 048
  3. HEMIGOXINE NATIVELLE [Interacting]
     Indication: DRUG USE FOR UNKNOWN INDICATION
     Route: 048
  4. XATRAL LP [Interacting]
     Indication: DRUG USE FOR UNKNOWN INDICATION
     Route: 048
  5. KARDEGIC [Concomitant]
  6. VITAMIN B1 1MGM TAB [Concomitant]
  7. ANDROCUR [Concomitant]
  8. DAFALGAN [Concomitant]

REACTIONS (2)
  - DRUG INTERACTION [None]
  - FALL [None]
